FAERS Safety Report 4702916-5 (Version None)
Quarter: 2005Q2

REPORT INFORMATION
  Report Type: 
  Country: None (occurrence: None)
  Receive Date: 20050624
  Receipt Date: 20050331
  Transmission Date: 20051028
  Serious: No
  Sender: FDA-Public Use
  Company Number: 2005BI009049

PATIENT
  Sex: Female

DRUGS (3)
  1. NATALIZUMAB [Suspect]
     Indication: MULTIPLE SCLEROSIS
     Dosage: UNKNOWN;IV
     Route: 042
     Dates: start: 20050217, end: 20050217
  2. AVONEX [Suspect]
     Indication: MULTIPLE SCLEROSIS
     Dosage: UNKNOWN;IM
     Route: 030
     Dates: start: 19970101
  3. AVONEX [Suspect]
     Indication: MULTIPLE SCLEROSIS
     Dosage: 30 UG;QW;IM
     Route: 030
     Dates: start: 20030101

REACTIONS (11)
  - BLADDER DISORDER [None]
  - CATARACT [None]
  - CYSTITIS [None]
  - DEPRESSION [None]
  - DRY MOUTH [None]
  - FATIGUE [None]
  - FEELING COLD [None]
  - MEMORY IMPAIRMENT [None]
  - PYREXIA [None]
  - SUNBURN [None]
  - WEIGHT DECREASED [None]
